FAERS Safety Report 23863614 (Version 2)
Quarter: 2024Q4

REPORT INFORMATION
  Report Type: Spontaneous
  Country: CA (occurrence: CA)
  Receive Date: 20240516
  Receipt Date: 20241113
  Transmission Date: 20250114
  Serious: Yes (Other)
  Sender: ALEXION PHARMACEUTICALS
  Company Number: 2024A111435

PATIENT
  Age: 3 Decade

DRUGS (14)
  1. QUETIAPINE [Suspect]
     Active Substance: QUETIAPINE
     Indication: Bipolar disorder
     Dosage: 1 EVERY 1 DAYS
  2. QUETIAPINE [Suspect]
     Active Substance: QUETIAPINE
     Dosage: 1 EVERY 1 DAYS
  3. QUETIAPINE [Suspect]
     Active Substance: QUETIAPINE
     Dosage: 1 EVERY 1 DAYS
  4. QUETIAPINE [Suspect]
     Active Substance: QUETIAPINE
     Dosage: 1 EVERY 1 DAYS
  5. QUETIAPINE [Suspect]
     Active Substance: QUETIAPINE
     Dosage: 100 MILLIGRAM, BID
  6. QUETIAPINE [Suspect]
     Active Substance: QUETIAPINE
     Dosage: 100 MILLIGRAM, BID
  7. QUETIAPINE [Suspect]
     Active Substance: QUETIAPINE
     Dosage: 100 MILLIGRAM, BID
  8. QUETIAPINE [Suspect]
     Active Substance: QUETIAPINE
     Dosage: 100 MILLIGRAM, BID
  9. QUETIAPINE [Suspect]
     Active Substance: QUETIAPINE
     Dosage: 25 MILLIGRAM, BID
  10. QUETIAPINE [Suspect]
     Active Substance: QUETIAPINE
     Dosage: 25 MILLIGRAM, BID
  11. QUETIAPINE [Suspect]
     Active Substance: QUETIAPINE
     Dosage: 25 MILLIGRAM, BID
  12. QUETIAPINE [Suspect]
     Active Substance: QUETIAPINE
     Dosage: 25 MILLIGRAM, BID
  13. ARIPIPRAZOLE [Suspect]
     Active Substance: ARIPIPRAZOLE
     Indication: Bipolar disorder
  14. ARIPIPRAZOLE [Suspect]
     Active Substance: ARIPIPRAZOLE

REACTIONS (9)
  - Apathy [Recovered/Resolved]
  - Depressed mood [Recovered/Resolved]
  - Drug dependence [Recovered/Resolved]
  - Loss of libido [Recovered/Resolved]
  - Sedation [Recovered/Resolved]
  - Condition aggravated [Recovering/Resolving]
  - Substance use disorder [Recovering/Resolving]
  - Nicotine dependence [Recovering/Resolving]
  - Off label use [Recovering/Resolving]
